FAERS Safety Report 5261615-4 (Version None)
Quarter: 2007Q1

REPORT INFORMATION
  Report Type: 
  Country: None (occurrence: None)
  Receive Date: 20070307
  Receipt Date: 20070226
  Transmission Date: 20070707
  Serious: Yes (Hospitalization)
  Sender: FDA-Public Use
  Company Number: 2007-00342

PATIENT
  Age: 71 Year
  Sex: Female

DRUGS (29)
  1. VELCADE [Suspect]
     Indication: MULTIPLE MYELOMA
     Dosage: 1.70 MG, 1.30 MG/M2
     Dates: start: 20061228, end: 20070107
  2. VELCADE [Suspect]
     Indication: MULTIPLE MYELOMA
     Dosage: 1.70 MG, 1.30 MG/M2
     Dates: start: 20070122, end: 20070129
  3. DEXAMETHASONE [Concomitant]
  4. PREDNISOLONE [Concomitant]
  5. LANSOPRAZOLE [Concomitant]
  6. BAKTAR (SULFAMETHOXAZOLE, TRIMETHOPRIM [Concomitant]
  7. DEPAKENE (VALPROAE SODIUM) [Concomitant]
  8. ROHYPNOL (FLUNITRAZEPAM) [Concomitant]
  9. MARZULENE S (LEVOGLUTAMIDE, SODIUM GUALENATE) [Concomitant]
  10. LASIX [Concomitant]
  11. MAGNESIUM OXIDE (MAGNESIUM OXIDE) [Concomitant]
  12. VALTREX [Concomitant]
  13. ALLOID (SODIUM ALGINATE) [Concomitant]
  14. PURSENNID (SENNA LEAF) [Concomitant]
  15. WARFARIN SODIUM [Concomitant]
  16. MYCOSYST (FLUCONAZOLE) [Concomitant]
  17. ALLOPURINOL [Concomitant]
  18. PAZUFLOXACIN (PAZUFLOXACIN) [Concomitant]
  19. ALBUMIN (HUMAN) [Concomitant]
  20. DOPAMINE HYDROCHLORIDE [Concomitant]
  21. SOLDEM 1 (GLUCOSE, SODIUM LACTATE, SODIUM CHLORIDE) [Concomitant]
  22. CALCIUM CHLORIDE ANHYDROUS (CALCIUM CHLORIDE ANHYDROUS) [Concomitant]
  23. SOLDEM 3A (SODIUM LACTATE, POTASSIUM CHLORIDE, CARBOHYRDATES NOS, SODI [Concomitant]
  24. SODIUM BICARBONATE [Concomitant]
  25. NOVOLIN R [Concomitant]
  26. PRIMPERAN TAB [Concomitant]
  27. THALIDOMIDE [Concomitant]
  28. VINCRISTINE [Concomitant]
  29. MELPHALAN [Concomitant]

REACTIONS (9)
  - ANAEMIA [None]
  - BLOOD AMYLASE INCREASED [None]
  - COAGULATION TIME PROLONGED [None]
  - HEPATIC FUNCTION ABNORMAL [None]
  - NAUSEA [None]
  - NEUROPATHY PERIPHERAL [None]
  - ORTHOSTATIC HYPOTENSION [None]
  - PLATELET COUNT DECREASED [None]
  - URINARY RETENTION [None]
